FAERS Safety Report 9400598 (Version 1)
Quarter: 2013Q3

REPORT INFORMATION
  Report Type: Spontaneous
  Country: US (occurrence: None)
  Receive Date: 20130712
  Receipt Date: 20130712
  Transmission Date: 20140515
  Serious: Yes (Other)
  Sender: FDA-Public Use
  Company Number: None

PATIENT
  Age: 81 None
  Sex: Male
  Weight: 85.73 kg

DRUGS (1)
  1. TRAMADOL [Suspect]
     Indication: PAIN
     Dosage: 1 TAB 4 TIMES DAY
     Dates: start: 20130507

REACTIONS (1)
  - Tremor [None]
